FAERS Safety Report 8507788-9 (Version None)
Quarter: 2012Q3

REPORT INFORMATION
  Report Type: 
  Country: None (occurrence: None)
  Receive Date: 20120713
  Receipt Date: 20120709
  Transmission Date: 20120928
  Serious: Yes (Hospitalization, Other)
  Sender: FDA-Public Use
  Company Number: PHHY2012FR059385

PATIENT
  Sex: Female

DRUGS (3)
  1. KEPPRA [Concomitant]
     Indication: EPILEPSY
     Dosage: UNK
     Route: 048
  2. EXELON [Suspect]
     Indication: DEMENTIA ALZHEIMER'S TYPE
     Dosage: UNK
     Route: 048
     Dates: end: 20120501
  3. SINEMET [Concomitant]
     Indication: PARKINSONISM
     Dosage: UNK
     Route: 048

REACTIONS (6)
  - RESTLESSNESS [None]
  - FALL [None]
  - OSTEOARTHRITIS [None]
  - DISORIENTATION [None]
  - JOINT INJURY [None]
  - SINUS BRADYCARDIA [None]
